FAERS Safety Report 5094862-5 (Version None)
Quarter: 2006Q3

REPORT INFORMATION
  Report Type: 
  Country: None (occurrence: None)
  Receive Date: 20060901
  Receipt Date: 20060824
  Transmission Date: 20061208
  Serious: Yes (Hospitalization)
  Sender: FDA-Public Use
  Company Number: PHHO2006JP14234

PATIENT
  Age: 76 Year
  Sex: Female
  Weight: 51 kg

DRUGS (12)
  1. LOCHOL [Suspect]
     Indication: HYPERCHOLESTEROLAEMIA
     Dosage: 20 MG, QD
     Route: 048
     Dates: start: 20001110
  2. GLUCOBAY [Suspect]
     Indication: DIABETES MELLITUS
     Dosage: 300MG
     Route: 048
     Dates: start: 20001013
  3. AMARYL [Suspect]
     Indication: DIABETES MELLITUS
     Dosage: 1MG
     Route: 048
     Dates: start: 20020807, end: 20051018
  4. GLIMICRON [Concomitant]
  5. LANDEL [Concomitant]
  6. MAGNESIUM OXIDE [Concomitant]
  7. PREDONINE [Concomitant]
  8. BLOPRESS [Concomitant]
  9. NORVASC [Concomitant]
  10. LENDORMIN [Concomitant]
  11. NATEGLINIDE [Concomitant]
  12. MITIGLINIDE [Concomitant]

REACTIONS (2)
  - HEMIPARESIS [None]
  - LACUNAR INFARCTION [None]
